FAERS Safety Report 17992026 (Version 2)
Quarter: 2020Q3

REPORT INFORMATION
  Report Type: Report from Study
  Country: KR (occurrence: KR)
  Receive Date: 20200707
  Receipt Date: 20200910
  Transmission Date: 20201103
  Serious: Yes (Hospitalization)
  Sender: FDA-Public Use
  Company Number: KR-009507513-2001KOR004662

PATIENT
  Sex: Female

DRUGS (24)
  1. PEMBROLIZUMAB. [Suspect]
     Active Substance: PEMBROLIZUMAB
     Dosage: QUANTITY 2, DAY 1
     Dates: start: 20200303, end: 20200303
  2. PEMBROLIZUMAB. [Suspect]
     Active Substance: PEMBROLIZUMAB
     Dosage: QUANTITY 2, DAY 1
     Dates: start: 20200326, end: 20200326
  3. SODIUM CHLORIDE. [Concomitant]
     Active Substance: SODIUM CHLORIDE
     Dosage: QUANTITY 3, DAYS 1
     Dates: start: 20191223, end: 20191223
  4. DEXAMETHASONE SODIUM PHOSPHATE. [Concomitant]
     Active Substance: DEXAMETHASONE SODIUM PHOSPHATE
     Dosage: QUANTITY 3 DAY1
     Dates: start: 20191223, end: 20191223
  5. PEMBROLIZUMAB. [Suspect]
     Active Substance: PEMBROLIZUMAB
     Dosage: UNK
     Dates: start: 20200730, end: 20200730
  6. EMEND (FOSAPREPITANT DIMEGLUMINE) [Suspect]
     Active Substance: FOSAPREPITANT DIMEGLUMINE
     Dosage: QUANTITY 1, DAY 1
     Dates: start: 20191223, end: 20191223
  7. EMEND (FOSAPREPITANT DIMEGLUMINE) [Suspect]
     Active Substance: FOSAPREPITANT DIMEGLUMINE
     Dosage: QUANTITY 1, DAY 1
     Dates: start: 20200117, end: 20200117
  8. PEMBROLIZUMAB. [Suspect]
     Active Substance: PEMBROLIZUMAB
     Indication: NON-SMALL CELL LUNG CANCER METASTATIC
     Dosage: QUANTITY 2, DAY 1
     Dates: start: 20191223, end: 20191223
  9. PEMBROLIZUMAB. [Suspect]
     Active Substance: PEMBROLIZUMAB
     Dosage: QUANTITY 2, DAY 1
     Dates: start: 20200508, end: 20200508
  10. PEMBROLIZUMAB. [Suspect]
     Active Substance: PEMBROLIZUMAB
     Dosage: UNK
     Dates: start: 20200827, end: 20200827
  11. SODIUM CHLORIDE. [Concomitant]
     Active Substance: SODIUM CHLORIDE
     Dosage: QUANTITY 1, DAYS 1
     Dates: start: 20191223, end: 20191223
  12. MAGNESIUM SULFATE. [Concomitant]
     Active Substance: MAGNESIUM SULFATE
     Dosage: QUANTITY 1, DAY1
     Dates: start: 20191223, end: 20191223
  13. POTASSIUM CHLORIDE. [Concomitant]
     Active Substance: POTASSIUM CHLORIDE
     Dosage: QUANTITY 1, DAY 1
     Dates: start: 20191223, end: 20191223
  14. SODIUM CHLORIDE. [Concomitant]
     Active Substance: SODIUM CHLORIDE
     Dosage: QUANTITY 1, DAYS 1
     Dates: start: 20191223, end: 20191223
  15. ULTRAVIST [Concomitant]
     Active Substance: IOPROMIDE
     Dosage: 30 MILLILITER, QUANTITY 1 DAY 1
     Dates: start: 20191223, end: 20191223
  16. PEMBROLIZUMAB. [Suspect]
     Active Substance: PEMBROLIZUMAB
     Dosage: QUANTITY 2, DAY 1
     Dates: start: 20200416, end: 20200416
  17. PEMBROLIZUMAB. [Suspect]
     Active Substance: PEMBROLIZUMAB
     Dosage: QUANTITY 2, DAY 1
     Dates: start: 20200625, end: 20200625
  18. SODIUM CHLORIDE. [Concomitant]
     Active Substance: SODIUM CHLORIDE
     Dosage: QUANTITY 1, DAYS 1
     Dates: start: 20191223, end: 20191223
  19. MECKOOL [Concomitant]
     Dosage: QUANTITY 4, DAY 1
     Dates: start: 20191223, end: 20191223
  20. ALOXI [Concomitant]
     Active Substance: PALONOSETRON HYDROCHLORIDE
     Dosage: QUANTITY 1 DAY 1
     Dates: start: 20191223, end: 20191223
  21. LIDOCAINE HYDROCHLORIDE JEIL [Concomitant]
     Dosage: QUANTITY 1, DAY 1
     Dates: start: 20191223, end: 20191223
  22. PEMED S [Concomitant]
     Dosage: QUANTITY 1 DAY 1
     Dates: start: 20191223, end: 20191223
  23. PEMBROLIZUMAB. [Suspect]
     Active Substance: PEMBROLIZUMAB
     Dosage: QUANTITY 2, DAY 1
     Dates: start: 20200117, end: 20200117
  24. PEMBROLIZUMAB. [Suspect]
     Active Substance: PEMBROLIZUMAB
     Dosage: QUANTITY 2, DAY 1
     Dates: start: 20200207, end: 20200207

REACTIONS (7)
  - Adverse event [Unknown]
  - Adverse event [Unknown]
  - Inappropriate schedule of product administration [Unknown]
  - Adverse event [Unknown]
  - Adverse event [Unknown]
  - Adverse event [Unknown]
  - Adverse event [Unknown]

NARRATIVE: CASE EVENT DATE: 201912
